FAERS Safety Report 12931924 (Version 2)
Quarter: 2016Q4

REPORT INFORMATION
  Report Type: Spontaneous
  Country: FI (occurrence: FI)
  Receive Date: 20161111
  Receipt Date: 20161123
  Transmission Date: 20170207
  Serious: Yes (Death)
  Sender: FDA-Public Use
  Company Number: FI-ROCHE-1850813

PATIENT
  Age: 65 Year
  Sex: Female

DRUGS (6)
  1. ADALAT [Concomitant]
     Active Substance: NIFEDIPINE
     Indication: SCLERODACTYLIA
     Route: 065
     Dates: start: 201406, end: 20160822
  2. MYCOPHENOLATE [Concomitant]
     Active Substance: MYCOPHENOLIC ACID
     Indication: SCLERODACTYLIA
     Dosage: 500-1000 MG TWICE A DAY
     Route: 065
     Dates: start: 20160602
  3. PREDNISOLON [Concomitant]
     Active Substance: PREDNISOLONE
     Route: 065
     Dates: start: 201610
  4. THYROXIN [Concomitant]
     Active Substance: LEVOTHYROXINE
     Indication: HYPOTHYROIDISM
  5. MABTHERA [Suspect]
     Active Substance: RITUXIMAB
     Indication: SCLERODERMA
     Dosage: 1000 MG TWICE
     Route: 041
     Dates: start: 20160806, end: 20160822
  6. PREDNISOLON [Concomitant]
     Active Substance: PREDNISOLONE
     Indication: SCLERODACTYLIA
     Dosage: 40-15 MG DAILY
     Route: 065
     Dates: start: 20160602, end: 201610

REACTIONS (4)
  - Oedema peripheral [Unknown]
  - Off label use [Fatal]
  - Oesophageal candidiasis [Unknown]
  - Scleroderma [Fatal]

NARRATIVE: CASE EVENT DATE: 20160806
